FAERS Safety Report 5152520-2 (Version None)
Quarter: 2006Q4

REPORT INFORMATION
  Report Type: 
  Country: None (occurrence: None)
  Receive Date: 20061116
  Receipt Date: 20061016
  Transmission Date: 20070319
  Serious: Yes (Hospitalization)
  Sender: FDA-Public Use
  Company Number: US-ELI_LILLY_AND_COMPANY-US200610002587

PATIENT
  Age: 50 Year
  Sex: Male

DRUGS (3)
  1. LEXAPRO                                 /USA/ [Concomitant]
  2. GEMZAR [Suspect]
     Indication: NON-SMALL CELL LUNG CANCER STAGE IV
     Dosage: 1800 MG, UNK
     Route: 042
     Dates: start: 20060901, end: 20061009
  3. CARBOPLATIN [Concomitant]
     Indication: NON-SMALL CELL LUNG CANCER STAGE IV

REACTIONS (4)
  - FATIGUE [None]
  - MOBILITY DECREASED [None]
  - PLATELET COUNT INCREASED [None]
  - RASH [None]
